FAERS Safety Report 6589235-X (Version None)
Quarter: 2010Q1

REPORT INFORMATION
  Report Type: 
  Country: None (occurrence: None)
  Receive Date: 20100212
  Receipt Date: 20100126
  Transmission Date: 20100710
  Serious: Yes (Death)
  Sender: FDA-Public Use
  Company Number: 499700

PATIENT
  Age: 30 Year
  Sex: Female

DRUGS (8)
  1. MIDAZOLAM HCL [Suspect]
     Dosage: 10 MG, ONCE, SC
     Route: 058
  2. METOCLOPRAMIDE HYDROCHLORIDE [Suspect]
     Dosage: 30 MG, DAILY, SC
     Route: 058
  3. ACETAMINOPHEN [Concomitant]
  4. AMITRIPTYLINE HCL [Concomitant]
  5. CO-DANTHRAMER [Concomitant]
  6. DEXAMETHASONE [Concomitant]
  7. LANSOPRAZOLE [Concomitant]
  8. PHENYTOIN [Concomitant]

REACTIONS (14)
  - AGITATION [None]
  - AKATHISIA [None]
  - ALTERED STATE OF CONSCIOUSNESS [None]
  - ANTICONVULSANT DRUG LEVEL DECREASED [None]
  - CONVULSION [None]
  - DYSKINESIA [None]
  - EXTENSOR PLANTAR RESPONSE [None]
  - HEMIPARESIS [None]
  - HYPERREFLEXIA [None]
  - HYPERTONIA [None]
  - MUSCLE TWITCHING [None]
  - RESTLESSNESS [None]
  - TREMOR [None]
  - WHITE BLOOD CELL COUNT INCREASED [None]
